FAERS Safety Report 24267606 (Version 1)
Quarter: 2024Q3

REPORT INFORMATION
  Report Type: Spontaneous
  Country: GB (occurrence: GB)
  Receive Date: 20240830
  Receipt Date: 20240830
  Transmission Date: 20241016
  Serious: Yes (Other)
  Sender: STRIDES
  Company Number: GB-STRIDES ARCOLAB LIMITED-2024SP010823

PATIENT

DRUGS (5)
  1. OMEGA-3-ACID ETHYL ESTERS [Suspect]
     Active Substance: OMEGA-3-ACID ETHYL ESTERS
     Indication: Hypertriglyceridaemia
     Dosage: UNK
     Route: 065
  2. OMEGA-3-ACID ETHYL ESTERS [Suspect]
     Active Substance: OMEGA-3-ACID ETHYL ESTERS
     Dosage: UNK, (OMACOR)
     Route: 065
  3. HUMULIN L [Suspect]
     Active Substance: INSULIN HUMAN
     Indication: Diabetic ketoacidosis
     Dosage: UNK
     Route: 065
  4. FENOFIBRATE [Suspect]
     Active Substance: FENOFIBRATE
     Indication: Hypertriglyceridaemia
     Dosage: UNK
     Route: 065
  5. INSULIN NOS [Suspect]
     Active Substance: INSULIN NOS
     Indication: Diabetic ketoacidosis
     Dosage: UNK, (FIXED RATE)
     Route: 065

REACTIONS (2)
  - Premature delivery [Unknown]
  - Maternal exposure during pregnancy [Unknown]
